FAERS Safety Report 13618122 (Version 1)
Quarter: 2017Q2

REPORT INFORMATION
  Report Type: Spontaneous
  Country: DE (occurrence: DE)
  Receive Date: 20170606
  Receipt Date: 20170606
  Transmission Date: 20170830
  Serious: Yes (Other)
  Sender: FDA-Public Use
  Company Number: DE-ASTRAZENECA-2017SE57681

PATIENT
  Age: 78 Year
  Sex: Male

DRUGS (27)
  1. ATORVASTATIN [Concomitant]
     Active Substance: ATORVASTATIN
  2. CLONIDINE. [Concomitant]
     Active Substance: CLONIDINE
  3. INSULIN [Concomitant]
     Active Substance: INSULIN NOS
  4. HYDROCORTISONE. [Concomitant]
     Active Substance: HYDROCORTISONE
  5. FENTANYL. [Concomitant]
     Active Substance: FENTANYL
  6. SUFENTANIL [Concomitant]
     Active Substance: SUFENTANIL
  7. COLISTIN [Concomitant]
     Active Substance: COLISTIN
  8. TIGECYCLINE. [Concomitant]
     Active Substance: TIGECYCLINE
  9. LORAZEPAM. [Concomitant]
     Active Substance: LORAZEPAM
  10. HEPARIN [Concomitant]
     Active Substance: HEPARIN SODIUM
  11. PROPOFOL. [Concomitant]
     Active Substance: PROPOFOL
  12. SALBUTAMOL [Concomitant]
     Active Substance: ALBUTEROL
  13. GRANISETRON [Concomitant]
     Active Substance: GRANISETRON
  14. AMLODIPINE [Concomitant]
     Active Substance: AMLODIPINE BESYLATE
  15. PREGABALIN. [Concomitant]
     Active Substance: PREGABALIN
  16. METOCLOPRAMIDE. [Concomitant]
     Active Substance: METOCLOPRAMIDE
  17. MEROPENEM. [Suspect]
     Active Substance: MEROPENEM
     Indication: BACTERIAL INFECTION
     Route: 042
  18. OXYCODONE [Concomitant]
     Active Substance: OXYCODONE
  19. EPINEPHRINE. [Concomitant]
     Active Substance: EPINEPHRINE
  20. DIMENHYDRINATE. [Concomitant]
     Active Substance: DIMENHYDRINATE
  21. VORICONAZOLE. [Interacting]
     Active Substance: VORICONAZOLE
     Route: 042
  22. MELATONIN [Concomitant]
     Active Substance: MELATONIN
  23. METOPROLOL. [Concomitant]
     Active Substance: METOPROLOL
  24. FUROSEMIDE. [Concomitant]
     Active Substance: FUROSEMIDE
  25. IPRATROPIUM BROMIDE. [Concomitant]
     Active Substance: IPRATROPIUM BROMIDE
  26. HALOPERIDOL. [Concomitant]
     Active Substance: HALOPERIDOL
  27. METAMIZOLE [Concomitant]
     Active Substance: METAMIZOLE

REACTIONS (2)
  - Drug interaction [Unknown]
  - Drug clearance decreased [Recovered/Resolved]
